FAERS Safety Report 12786832 (Version 1)
Quarter: 2016Q3

REPORT INFORMATION
  Report Type: Spontaneous
  Country: US (occurrence: US)
  Receive Date: 20160927
  Receipt Date: 20160927
  Transmission Date: 20161109
  Serious: Yes (Other)
  Sender: FDA-Public Use
  Company Number: None

PATIENT
  Age: 62 Year
  Sex: Female

DRUGS (1)
  1. NINLARO [Suspect]
     Active Substance: IXAZOMIB
     Dosage: ?          OTHER FREQUENCY:WEEKLY;?
     Route: 048

REACTIONS (3)
  - Arthropod bite [None]
  - Pneumonia [None]
  - Upper respiratory tract infection [None]

NARRATIVE: CASE EVENT DATE: 20160927
